FAERS Safety Report 5650623-7 (Version None)
Quarter: 2008Q1

REPORT INFORMATION
  Report Type: 
  Country: None (occurrence: None)
  Receive Date: 20080303
  Receipt Date: 20080220
  Transmission Date: 20080703
  Serious: Yes (Hospitalization)
  Sender: FDA-Public Use
  Company Number: GXKR2008JP01908

PATIENT
  Sex: Male

DRUGS (4)
  1. RIFAMPICIN [Suspect]
     Indication: PULMONARY TUBERCULOSIS
  2. ISONIAZID [Concomitant]
  3. EBUTOL (ETHAMBUTOL) [Concomitant]
  4. PYRAZINAMIDE [Concomitant]

REACTIONS (2)
  - DRUG ERUPTION [None]
  - LIVER DISORDER [None]
